FAERS Safety Report 6848645-3 (Version None)
Quarter: 2010Q3

REPORT INFORMATION
  Report Type: 
  Country: None (occurrence: None)
  Receive Date: 20100716
  Receipt Date: 20100713
  Transmission Date: 20110219
  Serious: Yes (Life-Threatening)
  Sender: FDA-Public Use
  Company Number: US-B.I. PHARMACEUTICALS,INC./RIDGEFIELD-2010-BP-07952BP

PATIENT
  Sex: Female

DRUGS (10)
  1. SPIRIVA [Suspect]
     Indication: CHRONIC OBSTRUCTIVE PULMONARY DISEASE
     Dosage: 18 MCG
     Route: 055
     Dates: start: 20100709, end: 20100712
  2. PREDNISONE TAB [Suspect]
     Indication: WHEEZING
     Dosage: 60 MG
     Route: 048
     Dates: start: 20100709
  3. SINGULAIR [Concomitant]
     Indication: CHRONIC OBSTRUCTIVE PULMONARY DISEASE
  4. ALBUTEROL [Concomitant]
     Indication: CHRONIC OBSTRUCTIVE PULMONARY DISEASE
     Route: 055
  5. ALBUTEROL [Concomitant]
  6. FLONASE [Concomitant]
     Indication: HYPERSENSITIVITY
  7. FLOVENT [Concomitant]
     Indication: CHRONIC OBSTRUCTIVE PULMONARY DISEASE
  8. COMBIVENT [Concomitant]
     Indication: CHRONIC OBSTRUCTIVE PULMONARY DISEASE
     Route: 055
     Dates: end: 20100701
  9. BENADRYL [Concomitant]
     Indication: URTICARIA
  10. EPIPEN [Concomitant]
     Indication: URTICARIA

REACTIONS (2)
  - ANGIOEDEMA [None]
  - URTICARIA [None]
